FAERS Safety Report 20561888 (Version 3)
Quarter: 2022Q2

REPORT INFORMATION
  Report Type: Report from Study
  Country: KR (occurrence: KR)
  Receive Date: 20220307
  Receipt Date: 20220406
  Transmission Date: 20220721
  Serious: Yes (Other)
  Sender: FDA-Public Use
  Company Number: KR-NOVARTISPH-NVSC2022KR026884

PATIENT
  Sex: Female
  Weight: 74.4 kg

DRUGS (17)
  1. RYDAPT [Suspect]
     Active Substance: MIDOSTAURIN
     Indication: Acute myeloid leukaemia
     Dosage: 50 MG, BID
     Route: 048
     Dates: start: 20211211, end: 20211224
  2. RYDAPT [Suspect]
     Active Substance: MIDOSTAURIN
     Dosage: 50 MG, BID
     Route: 048
     Dates: start: 20220124, end: 20220206
  3. CYTARABINE [Concomitant]
     Active Substance: CYTARABINE
     Indication: Acute myeloid leukaemia
     Dosage: 360 MG
     Route: 042
     Dates: start: 20211204, end: 20211210
  4. CYTARABINE [Concomitant]
     Active Substance: CYTARABINE
     Dosage: 350 MG
     Route: 042
     Dates: start: 20220117, end: 20220121
  5. DAUNORUBICIN HYDROCHLORIDE [Concomitant]
     Active Substance: DAUNORUBICIN HYDROCHLORIDE
     Indication: Acute myeloid leukaemia
     Dosage: 160 MG
     Route: 042
     Dates: start: 20211204, end: 20211206
  6. DAUNORUBICIN HYDROCHLORIDE [Concomitant]
     Active Substance: DAUNORUBICIN HYDROCHLORIDE
     Dosage: 79 MG
     Route: 042
     Dates: start: 20220117, end: 20220118
  7. CEFTAZIDIME [Concomitant]
     Active Substance: CEFTAZIDIME
     Indication: Prophylaxis
     Dosage: 6 G
     Route: 042
     Dates: start: 20211206, end: 20211209
  8. CEFTAZIDIME [Concomitant]
     Active Substance: CEFTAZIDIME
     Dosage: 6 G
     Route: 042
     Dates: start: 20220202, end: 20220203
  9. CEFAZOLIN [Concomitant]
     Active Substance: CEFAZOLIN
     Indication: Prophylaxis
     Dosage: 6 G
     Route: 042
     Dates: start: 20211206, end: 20211209
  10. CEFAZOLIN [Concomitant]
     Active Substance: CEFAZOLIN
     Dosage: 6 G
     Route: 042
     Dates: start: 20220202, end: 20220203
  11. LEVOFLOXACIN [Concomitant]
     Active Substance: LEVOFLOXACIN
     Indication: Prophylaxis
     Dosage: 750 MG
     Route: 042
     Dates: start: 20211210, end: 20211222
  12. LEVOFLOXACIN [Concomitant]
     Active Substance: LEVOFLOXACIN
     Dosage: 500 MG (TABLET)
     Route: 048
     Dates: start: 20220202, end: 20220202
  13. FLAGYL [Concomitant]
     Active Substance: METRONIDAZOLE\METRONIDAZOLE HYDROCHLORIDE
     Indication: Prophylaxis
     Dosage: 1500 MG
     Route: 042
     Dates: start: 20211214, end: 20211223
  14. MAXIPIME [Concomitant]
     Active Substance: CEFEPIME HYDROCHLORIDE
     Indication: Prophylaxis
     Dosage: 6 G
     Route: 042
     Dates: start: 20211215, end: 20211222
  15. ONSERAN [Concomitant]
     Indication: Nausea
     Dosage: 12 MG
     Route: 042
     Dates: start: 20220121, end: 20220212
  16. TRIRAM [Concomitant]
     Indication: Insomnia
     Dosage: 0.25 MG
     Route: 048
     Dates: start: 20220122
  17. NOXAFIL [Concomitant]
     Active Substance: POSACONAZOLE
     Indication: Prophylaxis
     Dosage: 30 MG
     Route: 048
     Dates: start: 20211204, end: 20211228

REACTIONS (2)
  - Enterococcal infection [Recovering/Resolving]
  - Bacteraemia [Recovered/Resolved]

NARRATIVE: CASE EVENT DATE: 20211227
